FAERS Safety Report 7357787-8 (Version None)
Quarter: 2011Q1

REPORT INFORMATION
  Report Type: 
  Country: None (occurrence: None)
  Receive Date: 20110309
  Receipt Date: 20110224
  Transmission Date: 20110831
  Serious: Yes (Other)
  Sender: FDA-Public Use
  Company Number: 2011AP000353

PATIENT
  Age: 91 Year
  Sex: Female

DRUGS (2)
  1. CLARITHROMYCIN [Suspect]
     Indication: PNEUMONIA
     Dosage: 500 MG; BID;PO
     Route: 048
     Dates: start: 20110128, end: 20110202
  2. AUGMENTIN [Suspect]
     Indication: PNEUMONIA
     Dosage: 1.2 GM;IV;TID'
     Route: 042
     Dates: start: 20110128, end: 20110202

REACTIONS (1)
  - HEPATOCELLULAR INJURY [None]
